FAERS Safety Report 10436097 (Version 2)
Quarter: 2014Q3

REPORT INFORMATION
  Report Type: Spontaneous
  Country: US (occurrence: None)
  Receive Date: 20140904
  Receipt Date: 20140911
  Transmission Date: 20150326
  Serious: Yes (Life-Threatening, Other)
  Sender: FDA-Public Use
  Company Number: ADR-2014-01577

PATIENT
  Age: 22 Year
  Sex: Male

DRUGS (1)
  1. BACLOFEN. [Suspect]
     Active Substance: BACLOFEN
     Indication: MUSCLE SPASTICITY

REACTIONS (4)
  - Unresponsive to stimuli [None]
  - Cardiac arrest [None]
  - Bronchial secretion retention [None]
  - Respiratory arrest [None]

NARRATIVE: CASE EVENT DATE: 20140824
